FAERS Safety Report 8389917-3 (Version None)
Quarter: 2012Q2

REPORT INFORMATION
  Report Type: 
  Country: None (occurrence: None)
  Receive Date: 20120522
  Receipt Date: 20120516
  Transmission Date: 20120825
  Serious: Yes (Death, Life-Threatening)
  Sender: FDA-Public Use
  Company Number: 2012SP015477

PATIENT
  Age: 49 Year
  Sex: Male
  Weight: 89 kg

DRUGS (9)
  1. GRANOCYTE [Concomitant]
  2. VICTRELIS [Suspect]
     Indication: HEPATITIS C
     Dosage: 800 MG; TID; PO
     Route: 048
     Dates: start: 20110301
  3. BUPRENOREPHINE [Concomitant]
  4. REBETOL [Suspect]
     Indication: HEPATITIS C
     Dosage: 1000 MG; QD; PO
     Route: 048
     Dates: start: 20080101
  5. REBETOL [Suspect]
     Indication: HEPATITIS C
     Dosage: 1000 MG; QD; PO
     Route: 048
     Dates: start: 20110215
  6. LASIX [Concomitant]
  7. VIRAFERONPEG [Suspect]
     Indication: HEPATITIS C
     Dosage: 1 MCG/KG; QW
     Dates: start: 20110215
  8. VIRAFERONPEG [Suspect]
     Indication: HEPATITIS C
     Dosage: 1 MCG/KG; QW
     Dates: start: 20080101
  9. NEORECORMON [Concomitant]

REACTIONS (4)
  - OESOPHAGEAL VARICES HAEMORRHAGE [None]
  - GASTROINTESTINAL HAEMORRHAGE [None]
  - DISEASE COMPLICATION [None]
  - HEPATIC CIRRHOSIS [None]
